FAERS Safety Report 6183134-3 (Version None)
Quarter: 2009Q2

REPORT INFORMATION
  Report Type: 
  Country: None (occurrence: None)
  Receive Date: 20090507
  Receipt Date: 20090505
  Transmission Date: 20091009
  Serious: Yes (Life-Threatening, Hospitalization)
  Sender: FDA-Public Use
  Company Number: DE-ASTRAZENECA-2009PK01210

PATIENT
  Age: 68 Year
  Sex: Female
  Weight: 68 kg

DRUGS (20)
  1. SYMBICORT [Interacting]
     Indication: CHRONIC OBSTRUCTIVE PULMONARY DISEASE
     Dosage: BUDENOSID 200 ?G/ FORMOTEROL 6 ?G
     Route: 055
     Dates: start: 20081101, end: 20090216
  2. CELLCEPT [Suspect]
     Indication: RENAL TRANSPLANT
     Route: 048
     Dates: start: 20080101, end: 20081001
  3. CELLCEPT [Suspect]
     Route: 048
     Dates: start: 20081001, end: 20090216
  4. PROGRAF [Suspect]
     Indication: RENAL TRANSPLANT
     Route: 048
     Dates: start: 20080101, end: 20080301
  5. PROGRAF [Suspect]
     Route: 048
     Dates: start: 20080301, end: 20080501
  6. PROGRAF [Suspect]
     Route: 048
     Dates: start: 20080501, end: 20081001
  7. PROGRAF [Suspect]
     Route: 048
     Dates: start: 20081001, end: 20090215
  8. PROGRAF [Suspect]
     Route: 048
     Dates: start: 20090216
  9. AMLODIPINE [Concomitant]
     Indication: HYPERTENSION
     Route: 048
     Dates: start: 20080101, end: 20090216
  10. BERODUAL N [Concomitant]
     Indication: CHRONIC OBSTRUCTIVE PULMONARY DISEASE
     Dosage: FENOTEROL 40 ?G / IPRATROPIUM 21 ?G
     Route: 055
     Dates: start: 20081201, end: 20090216
  11. EINSALPHA [Concomitant]
     Indication: OSTEOPOROSIS
     Route: 048
     Dates: start: 20080101, end: 20081224
  12. LYRICA [Concomitant]
     Indication: PAIN
     Route: 048
     Dates: start: 20080101, end: 20090216
  13. PANTOZOL [Concomitant]
     Indication: PROPHYLAXIS AGAINST GASTROINTESTINAL ULCER
     Route: 048
     Dates: start: 20080101, end: 20090216
  14. PREDNISOLONE [Concomitant]
     Indication: RENAL TRANSPLANT
     Route: 048
     Dates: start: 20080101
  15. THEOPHYLLINE [Concomitant]
     Indication: CHRONIC OBSTRUCTIVE PULMONARY DISEASE
     Route: 048
     Dates: start: 20090115, end: 20090216
  16. TORSEMIDE [Concomitant]
     Route: 048
     Dates: start: 20080101, end: 20090215
  17. VALCYTE [Concomitant]
     Indication: CYTOMEGALOVIRUS INFECTION
     Route: 048
     Dates: start: 20081220, end: 20081224
  18. VALCYTE [Concomitant]
     Route: 048
     Dates: start: 20090326
  19. XIPAMIDE [Concomitant]
     Indication: HYPERTENSION
     Route: 048
     Dates: start: 20080101, end: 20090215
  20. SANDIMMUNE [Concomitant]
     Indication: RENAL TRANSPLANT
     Dates: start: 20080101

REACTIONS (2)
  - DRUG INTERACTION [None]
  - PNEUMONIA [None]
